FAERS Safety Report 6750287-5 (Version None)
Quarter: 2010Q2

REPORT INFORMATION
  Report Type: 
  Country: None (occurrence: None)
  Receive Date: 20100601
  Receipt Date: 20100526
  Transmission Date: 20101027
  Serious: Yes (Hospitalization)
  Sender: FDA-Public Use
  Company Number: FR-ABBOTT-10P-056-0642127-00

PATIENT
  Sex: Female

DRUGS (5)
  1. HUMIRA [Suspect]
     Indication: RHEUMATOID ARTHRITIS
     Route: 058
     Dates: start: 20100101, end: 20100301
  2. CORTICOIDS NOS [Concomitant]
     Indication: RHEUMATOID ARTHRITIS
     Route: 048
     Dates: start: 20100101
  3. METHOTREXATE [Concomitant]
     Indication: RHEUMATOID ARTHRITIS
     Dates: start: 20100406
  4. METHOTREXATE [Concomitant]
     Dates: start: 20100504
  5. RITUXIMAB [Concomitant]
     Indication: DRUG USE FOR UNKNOWN INDICATION
     Route: 050
     Dates: start: 20100510

REACTIONS (9)
  - BURNING SENSATION [None]
  - DYSAESTHESIA [None]
  - HOSPITALISATION [None]
  - INFLAMMATION [None]
  - IRON DEFICIENCY ANAEMIA [None]
  - JOINT SWELLING [None]
  - KERATITIS [None]
  - LEUKOCYTOCLASTIC VASCULITIS [None]
  - PARAESTHESIA [None]
